FAERS Safety Report 24358563 (Version 1)
Quarter: 2024Q3

REPORT INFORMATION
  Report Type: Spontaneous
  Country: US (occurrence: US)
  Receive Date: 20240924
  Receipt Date: 20240924
  Transmission Date: 20241017
  Serious: Yes (Hospitalization, Other)
  Sender: PFIZER
  Company Number: US-PFIZER INC-202400173175

PATIENT
  Age: 5 Year
  Sex: Male

DRUGS (1)
  1. OXBRYTA [Suspect]
     Active Substance: VOXELOTOR
     Dosage: (300MG, 2 TABLETS FOR ORAL SUSPENSION ONCE DAILY, ORALLY)
     Route: 048
     Dates: start: 202406

REACTIONS (4)
  - Abdominal pain [Unknown]
  - Sickle cell anaemia with crisis [Recovered/Resolved]
  - Faecaloma [Unknown]
  - Product dose omission in error [Unknown]

NARRATIVE: CASE EVENT DATE: 20240101
